FAERS Safety Report 4743586-X (Version None)
Quarter: 2005Q3

REPORT INFORMATION
  Report Type: 
  Country: None (occurrence: None)
  Receive Date: 20050812
  Receipt Date: 20050516
  Transmission Date: 20060218
  Serious: Yes (Hospitalization)
  Sender: FDA-Public Use
  Company Number: 2005AP02902

PATIENT
  Age: 26765 Day
  Sex: Male

DRUGS (4)
  1. ZOLADEX [Suspect]
     Indication: PROSTATE CANCER
     Route: 058
     Dates: start: 20020911, end: 20030205
  2. ZOLADEX [Suspect]
     Route: 058
     Dates: start: 20030305, end: 20050202
  3. ODYNE [Suspect]
     Indication: PROSTATE CANCER
     Route: 048
     Dates: start: 20020904, end: 20041013
  4. FLIVAS [Concomitant]
     Indication: BENIGN PROSTATIC HYPERPLASIA
     Route: 048
     Dates: start: 20020911

REACTIONS (2)
  - PANCYTOPENIA [None]
  - PYREXIA [None]
